FAERS Safety Report 13977445 (Version 1)
Quarter: 2017Q3

REPORT INFORMATION
  Report Type: Spontaneous
  Country: US (occurrence: US)
  Receive Date: 20170915
  Receipt Date: 20170915
  Transmission Date: 20171128
  Serious: No
  Sender: FDA-Public Use
  Company Number: US-009507513-1709USA006441

PATIENT
  Age: 27 Year
  Sex: Female
  Weight: 58.96 kg

DRUGS (1)
  1. NEXPLANON [Suspect]
     Active Substance: ETONOGESTREL
     Dosage: 4 YEARS IMPLANT, LEFT ARM
     Route: 059
     Dates: start: 20160623

REACTIONS (2)
  - Drug prescribing error [Unknown]
  - Migration of implanted drug [Unknown]

NARRATIVE: CASE EVENT DATE: 2017
